FAERS Safety Report 21858183 (Version 2)
Quarter: 2023Q1

REPORT INFORMATION
  Report Type: Other
  Country: MX (occurrence: None)
  Receive Date: 20230113
  Receipt Date: 20230116
  Transmission Date: 20230418
  Serious: Yes (Other)
  Sender: FDA-Public Use
  Company Number: MX-ROCHE-3249552

PATIENT
  Age: 28 Year
  Sex: Male

DRUGS (1)
  1. OCREVUS [Suspect]
     Active Substance: OCRELIZUMAB
     Indication: Multiple sclerosis
     Dosage: OCRELIZUMAB VIAL OF 300MG/10ML (30MG/ML)
     Route: 042
     Dates: start: 20221215

REACTIONS (20)
  - Multiple sclerosis [Unknown]
  - Nervousness [Recovered/Resolved]
  - Somnolence [Recovered/Resolved]
  - Fatigue [Not Recovered/Not Resolved]
  - Dizziness [Not Recovered/Not Resolved]
  - Headache [Not Recovered/Not Resolved]
  - Asthenia [Not Recovered/Not Resolved]
  - Stress [Not Recovered/Not Resolved]
  - Anxiety [Unknown]
  - Discomfort [Unknown]
  - Pruritus [Unknown]
  - Sleep disorder [Recovered/Resolved]
  - Feeling hot [Unknown]
  - Muscle spasms [Unknown]
  - Fear [Unknown]
  - Influenza [Unknown]
  - Mobility decreased [Unknown]
  - Frustration tolerance decreased [Unknown]
  - Dyspnoea [Unknown]
  - Feeling of despair [Unknown]

NARRATIVE: CASE EVENT DATE: 20221215
